FAERS Safety Report 9201286 (Version 1)
Quarter: 2013Q2

REPORT INFORMATION
  Report Type: Spontaneous
  Country: SE (occurrence: SE)
  Receive Date: 20130401
  Receipt Date: 20130401
  Transmission Date: 20140414
  Serious: Yes (Life-Threatening, Hospitalization)
  Sender: FDA-Public Use
  Company Number: PHHY2013SE030317

PATIENT
  Age: 77 Year
  Sex: Male

DRUGS (2)
  1. VALSARTAN+HYDROCHLOROTHIAZIDE [Suspect]
     Route: 048
     Dates: start: 201211, end: 201212
  2. VALSARTAN+HYDROCHLOROTHIAZIDE [Suspect]
     Route: 048

REACTIONS (2)
  - Blood pressure increased [Not Recovered/Not Resolved]
  - Drug ineffective [Not Recovered/Not Resolved]
